FAERS Safety Report 5800849-4 (Version None)
Quarter: 2008Q3

REPORT INFORMATION
  Report Type: 
  Country: None (occurrence: None)
  Receive Date: 20080703
  Receipt Date: 20080625
  Transmission Date: 20090109
  Serious: Yes (Hospitalization, Disabling)
  Sender: FDA-Public Use
  Company Number: JP-ABBOTT-07P-087-0373930-00

PATIENT
  Sex: Male

DRUGS (19)
  1. KALETRA [Suspect]
     Indication: HIV INFECTION
     Route: 048
     Dates: start: 20061110, end: 20071101
  2. NORVIR [Suspect]
     Indication: HIV INFECTION
     Route: 048
     Dates: start: 20060324, end: 20060414
  3. NORVIR [Suspect]
     Dosage: 200 MG, DAILY
     Route: 048
     Dates: start: 20080126
  4. ATAZANAVIR [Suspect]
     Indication: HIV INFECTION
     Route: 048
     Dates: start: 20060324, end: 20060414
  5. FOSAMPRENAVIR [Concomitant]
     Indication: HIV INFECTION
     Route: 048
     Dates: start: 20060526, end: 20061109
  6. EMTRICITABINE W/TENOFOVIR [Concomitant]
     Indication: HIV INFECTION
     Route: 048
     Dates: start: 20060324, end: 20060414
  7. EMTRICITABINE W/TENOFOVIR [Concomitant]
     Route: 048
     Dates: start: 20060526
  8. GANCICLOVIR [Concomitant]
     Indication: CYTOMEGALOVIRUS INFECTION
     Route: 042
     Dates: start: 20060215, end: 20060303
  9. GANCICLOVIR [Concomitant]
     Route: 042
     Dates: start: 20070424, end: 20080220
  10. VALGANCICLOVIR HCL [Concomitant]
     Indication: CYTOMEGALOVIRUS INFECTION
     Route: 048
     Dates: start: 20060304, end: 20060425
  11. VALGANCICLOVIR HCL [Concomitant]
     Route: 048
     Dates: start: 20060426, end: 20060522
  12. AZITHROMYCIN HYDRATE [Concomitant]
     Indication: MYCOBACTERIUM AVIUM COMPLEX INFECTION
     Route: 048
     Dates: start: 20060215
  13. BACTRIM [Concomitant]
     Indication: PNEUMOCYSTIS JIROVECI PNEUMONIA
     Route: 048
     Dates: start: 20060224, end: 20060306
  14. BACTRIM [Concomitant]
     Route: 048
     Dates: start: 20060307, end: 20060316
  15. BACTRIM [Concomitant]
     Route: 048
     Dates: start: 20060317
  16. EFAVIRENZ [Concomitant]
     Indication: HIV INFECTION
     Dosage: 600 MG, DAILY
     Route: 048
     Dates: start: 20071102, end: 20080125
  17. SAQUINAVIR [Concomitant]
     Indication: HIV INFECTION
     Dosage: 2000 MG, DAILY
     Route: 048
     Dates: start: 20080126
  18. FOSCARNET SODIUM HYDRATE [Concomitant]
     Indication: CYTOMEGALOVIRUS INFECTION
     Route: 042
     Dates: start: 20071129
  19. FLUCONAZOLE [Concomitant]
     Indication: PNEUMONIA FUNGAL
     Route: 048
     Dates: start: 20070202, end: 20071023

REACTIONS (9)
  - AIDS ENCEPHALOPATHY [None]
  - CHEST PAIN [None]
  - DIARRHOEA [None]
  - LYMPHOMA [None]
  - MASS [None]
  - PNEUMONIA FUNGAL [None]
  - PYREXIA [None]
  - RASH [None]
  - STOMACH MASS [None]
